FAERS Safety Report 4897938-8 (Version None)
Quarter: 2006Q1

REPORT INFORMATION
  Report Type: 
  Country: None (occurrence: None)
  Receive Date: 20060201
  Receipt Date: 20051124
  Transmission Date: 20060701
  Serious: Yes (Other)
  Sender: FDA-Public Use
  Company Number: ES-BRISTOL-MYERS SQUIBB COMPANY-13193628

PATIENT
  Age: 36 Year
  Sex: Female
  Weight: 60 kg

DRUGS (4)
  1. REYATAZ [Suspect]
     Indication: HIV INFECTION
     Route: 048
     Dates: start: 20050818, end: 20051124
  2. DIDANOSINE [Concomitant]
     Indication: HIV INFECTION
     Dates: start: 20050801
  3. TENOFOVIR [Concomitant]
     Indication: HIV INFECTION
     Dates: start: 20050801
  4. ZARATOR [Concomitant]
     Indication: HYPERLIPIDAEMIA

REACTIONS (1)
  - HEPATITIS TOXIC [None]
